FAERS Safety Report 17988135 (Version 1)
Quarter: 2020Q3

REPORT INFORMATION
  Report Type: Spontaneous
  Country: US (occurrence: US)
  Receive Date: 20200706
  Receipt Date: 20200706
  Transmission Date: 20201103
  Serious: No
  Sender: FDA-Public Use
  Company Number: None

PATIENT
  Sex: Female

DRUGS (1)
  1. VERZENIO [Suspect]
     Active Substance: ABEMACICLIB
     Indication: BREAST NEOPLASM
     Route: 048
     Dates: start: 20200211

REACTIONS (5)
  - Dizziness [None]
  - Nausea [None]
  - Diarrhoea [None]
  - Vomiting [None]
  - Fatigue [None]
